FAERS Safety Report 8360246-7 (Version None)
Quarter: 2012Q2

REPORT INFORMATION
  Report Type: 
  Country: None (occurrence: None)
  Receive Date: 20120515
  Receipt Date: 20120507
  Transmission Date: 20120825
  Serious: Yes (Death, Hospitalization)
  Sender: FDA-Public Use
  Company Number: US-BAYER-2010-005819

PATIENT
  Age: 20 Year
  Sex: Female
  Weight: 86.621 kg

DRUGS (7)
  1. MOTRIN [Concomitant]
     Dosage: 600 MG, 2 TIMES A DAY
  2. IUD NOS [Concomitant]
     Indication: CONTRACEPTION
  3. IBUPROFEN (ADVIL) [Concomitant]
  4. ACETAMINOPHEN [Concomitant]
  5. DOXYCYCLINE [Concomitant]
     Dosage: 2 TIMES A DAY
  6. YASMIN [Suspect]
     Dosage: UNK
     Dates: start: 20080101
  7. ANTIBIOTICS [Concomitant]
     Dosage: 2 TIMES A DAY

REACTIONS (3)
  - PULMONARY EMBOLISM [None]
  - THROMBOSIS [None]
  - PAIN [None]
